FAERS Safety Report 17667809 (Version 6)
Quarter: 2020Q2

REPORT INFORMATION
  Report Type: Spontaneous
  Country: US (occurrence: US)
  Receive Date: 20200414
  Receipt Date: 20200519
  Transmission Date: 20200713
  Serious: Yes (Other)
  Sender: FDA-Public Use
  Company Number: US-JNJFOC-20200408576

PATIENT
  Sex: Female

DRUGS (2)
  1. TOPAMAX [Suspect]
     Active Substance: TOPIRAMATE
     Route: 048
  2. TOPAMAX [Suspect]
     Active Substance: TOPIRAMATE
     Indication: PRODUCT USED FOR UNKNOWN INDICATION
     Route: 048

REACTIONS (9)
  - Intentional self-injury [Not Recovered/Not Resolved]
  - Product dose omission [Unknown]
  - Depression [Unknown]
  - Self-medication [Unknown]
  - Hypersensitivity [Unknown]
  - Post-traumatic stress disorder [Unknown]
  - Adverse event [Unknown]
  - Incorrect dose administered [Unknown]
  - Mania [Not Recovered/Not Resolved]
